FAERS Safety Report 5821000-0 (Version None)
Quarter: 2008Q3

REPORT INFORMATION
  Report Type: 
  Country: None (occurrence: None)
  Receive Date: 20080724
  Receipt Date: 20080715
  Transmission Date: 20090109
  Serious: Yes (Other)
  Sender: FDA-Public Use
  Company Number: US-JNJFOC-20080605425

PATIENT
  Sex: Male

DRUGS (2)
  1. RISPERDAL CONSTA [Suspect]
     Indication: SCHIZOPHRENIA
     Dosage: THE START DATE IS JUNE 2008.
     Route: 030
  2. HEART MEDICINE [Concomitant]

REACTIONS (3)
  - BLOOD PRESSURE DECREASED [None]
  - HEART RATE DECREASED [None]
  - RESPIRATORY RATE DECREASED [None]
